FAERS Safety Report 6201032-3 (Version None)
Quarter: 2009Q2

REPORT INFORMATION
  Report Type: 
  Country: None (occurrence: None)
  Receive Date: 20090526
  Receipt Date: 20090518
  Transmission Date: 20091009
  Serious: Yes (Other)
  Sender: FDA-Public Use
  Company Number: US-ELI_LILLY_AND_COMPANY-US200905003540

PATIENT
  Sex: Female

DRUGS (4)
  1. HUMALOG MIX 75/25 [Suspect]
     Dosage: 25 U, EACH MORNING
  2. HUMALOG MIX 75/25 [Suspect]
     Dosage: 30 U, EACH EVENING
  3. METFORMIN HCL [Concomitant]
  4. PREDNISONE [Concomitant]

REACTIONS (11)
  - BLOOD GLUCOSE DECREASED [None]
  - BLOOD GLUCOSE INCREASED [None]
  - BURSITIS [None]
  - CEREBROVASCULAR ACCIDENT [None]
  - DYSARTHRIA [None]
  - FACIAL PALSY [None]
  - FALL [None]
  - HEADACHE [None]
  - JOINT INJURY [None]
  - TREMOR [None]
  - VISION BLURRED [None]
